FAERS Safety Report 9206482 (Version 1)
Quarter: 2013Q2

REPORT INFORMATION
  Report Type: Spontaneous
  Country: FR (occurrence: None)
  Receive Date: 20130401
  Receipt Date: 20130401
  Transmission Date: 20140414
  Serious: Yes (Other)
  Sender: FDA-Public Use
  Company Number: 2013000083

PATIENT
  Age: 40 Year
  Sex: Female

DRUGS (1)
  1. ACEON [Suspect]
     Indication: ESSENTIAL HYPERTENSION
     Route: 048
     Dates: start: 20090303

REACTIONS (3)
  - Hypertensive crisis [None]
  - Vomiting [None]
  - Tinnitus [None]
